FAERS Safety Report 10171843 (Version 1)
Quarter: 2014Q2

REPORT INFORMATION
  Report Type: Spontaneous
  Country: US (occurrence: None)
  Receive Date: 20140512
  Receipt Date: 20140512
  Transmission Date: 20141212
  Serious: Yes (Hospitalization)
  Sender: FDA-Public Use
  Company Number: 2329777

PATIENT
  Age: 36 Year
  Sex: Female

DRUGS (4)
  1. LIPOSYN [Suspect]
     Indication: TOXICITY TO VARIOUS AGENTS
     Dosage: 0.42 ML/KG, UNKNOWN, INTRAVENOUS BOLUS
     Route: 040
  2. LIPOSYN [Suspect]
     Indication: TOXICITY TO VARIOUS AGENTS
     Dosage: 0.42 ML/KG, UNKNOWN, INTRAVENOUS BOLUS
     Route: 040
  3. EPINEPHRINE [Concomitant]
  4. SODIUM BICARBONATE [Concomitant]

REACTIONS (6)
  - Acute respiratory distress syndrome [None]
  - Encephalopathy [None]
  - Cardiac arrest [None]
  - Aspartate aminotransferase increased [None]
  - Alanine aminotransferase increased [None]
  - Blood triglycerides increased [None]
